FAERS Safety Report 9029721 (Version 1)
Quarter: 2013Q1

REPORT INFORMATION
  Report Type: Spontaneous
  Country: JP (occurrence: JP)
  Receive Date: 20130124
  Receipt Date: 20130124
  Transmission Date: 20140127
  Serious: Yes (Hospitalization)
  Sender: FDA-Public Use
  Company Number: JP-009507513-1301JPN004921

PATIENT
  Age: 38 Year
  Sex: Male

DRUGS (4)
  1. RIBAVIRIN [Suspect]
     Indication: CHRONIC HEPATITIS C
     Dosage: DAILY DOSAGE UNKNOWN
     Route: 048
     Dates: start: 201103
  2. PEGINTERFERON ALFA-2B [Suspect]
     Indication: CHRONIC HEPATITIS C
     Dosage: DAILY DOSAGE UNKNOWN
     Route: 058
     Dates: start: 201103
  3. PEGINTERFERON ALFA-2B [Suspect]
     Dosage: DAILY DOSAGE UNKNOWN
     Route: 058
     Dates: start: 201103
  4. PEGINTERFERON ALFA-2B [Suspect]
     Dosage: DAILY DOSAGE UNKNOWN
     Route: 058
     Dates: start: 201103

REACTIONS (1)
  - Type 1 diabetes mellitus [Unknown]
